FAERS Safety Report 7504469-5 (Version None)
Quarter: 2011Q2

REPORT INFORMATION
  Report Type: 
  Country: None (occurrence: None)
  Receive Date: 20110525
  Receipt Date: 20110518
  Transmission Date: 20111010
  Serious: Yes (Death, Other)
  Sender: FDA-Public Use
  Company Number: US-BAYER-200922410NA

PATIENT
  Sex: Female

DRUGS (2)
  1. TRASYLOL [Suspect]
     Indication: AORTIC VALVE REPLACEMENT
  2. TRASYLOL [Suspect]
     Indication: CARDIAC OPERATION
     Dates: start: 20050311

REACTIONS (11)
  - DEATH [None]
  - EMOTIONAL DISTRESS [None]
  - RENAL FAILURE [None]
  - ANHEDONIA [None]
  - INJURY [None]
  - ANXIETY [None]
  - PAIN [None]
  - RENAL INJURY [None]
  - RENAL IMPAIRMENT [None]
  - FEAR [None]
  - STRESS [None]
